FAERS Safety Report 4382541-9 (Version None)
Quarter: 2004Q2

REPORT INFORMATION
  Report Type: 
  Country: None (occurrence: None)
  Receive Date: 20040617
  Receipt Date: 20040602
  Transmission Date: 20050107
  Serious: Yes (Hospitalization, Other)
  Sender: FDA-Public Use
  Company Number: 2004-DE-03184GD

PATIENT
  Age: 72 Year
  Sex: Female

DRUGS (2)
  1. PRAMIPEXOLE (PRAMIPEXOLE DIHYDROCHLORIDE) [Suspect]
     Indication: PARKINSON'S DISEASE
     Dosage: PO
     Route: 048
  2. L-DOPA (LEVODOPA) (NR) [Suspect]
     Indication: PARKINSON'S DISEASE

REACTIONS (2)
  - BACK PAIN [None]
  - PAIN EXACERBATED [None]
